FAERS Safety Report 4919025-2 (Version None)
Quarter: 2006Q1

REPORT INFORMATION
  Report Type: 
  Country: None (occurrence: None)
  Receive Date: 20060222
  Receipt Date: 20060111
  Transmission Date: 20060701
  Serious: Yes (Hospitalization, Other)
  Sender: FDA-Public Use
  Company Number: US-AMGEN-US164485

PATIENT
  Sex: Female

DRUGS (5)
  1. ENBREL [Suspect]
     Indication: PSORIASIS
     Route: 058
     Dates: start: 20030101, end: 20051101
  2. METHOTREXATE [Concomitant]
     Dates: start: 20020601, end: 20041001
  3. METHOTREXATE [Concomitant]
  4. NEORAL [Concomitant]
     Dates: start: 20020901, end: 20040401
  5. PREDNISONE [Concomitant]
     Dates: start: 20060119

REACTIONS (7)
  - CYSTITIS [None]
  - ERYTHRODERMIC PSORIASIS [None]
  - MULTIPLE SCLEROSIS [None]
  - OPTIC NEURITIS [None]
  - PSORIATIC ARTHROPATHY [None]
  - PYELONEPHRITIS [None]
  - PYREXIA [None]
